FAERS Safety Report 20685262 (Version 3)
Quarter: 2022Q2

REPORT INFORMATION
  Report Type: Spontaneous
  Country: US (occurrence: US)
  Receive Date: 20220407
  Receipt Date: 20220617
  Transmission Date: 20220720
  Serious: No
  Sender: FDA-Public Use
  Company Number: US-KARYOPHARM-2022KPT000119

PATIENT

DRUGS (8)
  1. XPOVIO [Suspect]
     Active Substance: SELINEXOR
     Indication: Plasma cell myeloma
     Dosage: 80 MG, WEEKLY, ORAL
     Route: 048
     Dates: start: 20220127, end: 202202
  2. XPOVIO [Suspect]
     Active Substance: SELINEXOR
     Dosage: 40 MG, WEEKLY
     Route: 048
     Dates: start: 202202, end: 202203
  3. XPOVIO [Suspect]
     Active Substance: SELINEXOR
     Dosage: 40 MG, WEEKLY ON THURSDAYS
     Route: 048
     Dates: start: 2022
  4. POMALYST [Concomitant]
     Active Substance: POMALIDOMIDE
     Indication: Plasma cell myeloma
     Dosage: 2 MG, WEEKLY, ORAL
     Route: 048
     Dates: start: 20210625, end: 2022
  5. COMPAZINE [Concomitant]
     Active Substance: PROCHLORPERAZINE MALEATE
     Indication: Nausea
  6. DEXAMETHASONE [Concomitant]
     Active Substance: DEXAMETHASONE
     Indication: Plasma cell myeloma
  7. VELCADE [Concomitant]
     Active Substance: BORTEZOMIB
  8. COREG [Concomitant]
     Active Substance: CARVEDILOL
     Dosage: UNK

REACTIONS (22)
  - Anxiety [Unknown]
  - Dyspepsia [Unknown]
  - Chest discomfort [Unknown]
  - Blood urea abnormal [Unknown]
  - White blood cell count decreased [Unknown]
  - Increased tendency to bruise [Not Recovered/Not Resolved]
  - Bone pain [Unknown]
  - Upper-airway cough syndrome [Unknown]
  - Labile blood pressure [Unknown]
  - Fall [Unknown]
  - Diarrhoea [Not Recovered/Not Resolved]
  - Nausea [Not Recovered/Not Resolved]
  - Vomiting [Unknown]
  - Fatigue [Not Recovered/Not Resolved]
  - Constipation [Not Recovered/Not Resolved]
  - Decreased appetite [Not Recovered/Not Resolved]
  - Weight decreased [Not Recovered/Not Resolved]
  - Platelet count decreased [Not Recovered/Not Resolved]
  - Haemoglobin decreased [Unknown]
  - Neutrophil count decreased [Unknown]
  - Red blood cell count decreased [Unknown]
  - Dizziness [Unknown]

NARRATIVE: CASE EVENT DATE: 20220101
